FAERS Safety Report 25378948 (Version 2)
Quarter: 2025Q2

REPORT INFORMATION
  Report Type: Report from Study
  Country: CA (occurrence: CA)
  Receive Date: 20250530
  Receipt Date: 20250610
  Transmission Date: 20250717
  Serious: Yes (Hospitalization, Other)
  Sender: ROCHE
  Company Number: CA-ROCHE-1137205

PATIENT
  Age: 54 Year
  Sex: Female
  Weight: 92.9 kg

DRUGS (15)
  1. ACTEMRA [Suspect]
     Active Substance: TOCILIZUMAB
     Indication: Rheumatoid arthritis
     Dosage: LAST INFUSION DATE: 09/AUG/2012
     Route: 042
     Dates: start: 20110509
  2. ACTEMRA [Suspect]
     Active Substance: TOCILIZUMAB
     Route: 042
     Dates: start: 20141029
  3. ACTEMRA [Suspect]
     Active Substance: TOCILIZUMAB
     Route: 042
     Dates: start: 20151002
  4. ACTEMRA [Suspect]
     Active Substance: TOCILIZUMAB
     Route: 042
  5. ACTEMRA [Suspect]
     Active Substance: TOCILIZUMAB
     Route: 042
  6. ACTONEL [Concomitant]
     Active Substance: RISEDRONATE SODIUM
  7. CALCIUM [Concomitant]
     Active Substance: CALCIUM
  8. CRESTOR [Concomitant]
     Active Substance: ROSUVASTATIN CALCIUM
  9. FOLIC ACID [Concomitant]
     Active Substance: FOLIC ACID
  10. METHOTREXATE [Concomitant]
     Active Substance: METHOTREXATE
  11. PREDNISONE [Concomitant]
     Active Substance: PREDNISONE
  12. VITAMINS [Concomitant]
     Active Substance: VITAMINS
  13. NAPROXEN [Concomitant]
     Active Substance: NAPROXEN
  14. ROSUVASTATIN [Concomitant]
     Active Substance: ROSUVASTATIN
  15. VITAMIN D [Concomitant]
     Active Substance: VITAMIN D NOS

REACTIONS (9)
  - Bursitis [Unknown]
  - Arthropathy [Recovering/Resolving]
  - Nasopharyngitis [Recovered/Resolved]
  - Rheumatoid arthritis [Not Recovered/Not Resolved]
  - Sinusitis [Recovered/Resolved]
  - Weight decreased [Unknown]
  - Nasopharyngitis [Unknown]
  - Arthralgia [Unknown]
  - Weight increased [Unknown]

NARRATIVE: CASE EVENT DATE: 20120801
